FAERS Safety Report 6975633-9 (Version None)
Quarter: 2010Q3

REPORT INFORMATION
  Report Type: 
  Country: None (occurrence: None)
  Receive Date: 20100910
  Receipt Date: 20100901
  Transmission Date: 20110219
  Serious: Yes (Hospitalization)
  Sender: FDA-Public Use
  Company Number: US-JNJFOC-20100901392

PATIENT
  Sex: Female
  Weight: 54.43 kg

DRUGS (5)
  1. FENTANYL CITRATE [Suspect]
     Indication: NECK PAIN
     Route: 062
  2. FENTANYL-100 [Suspect]
     Indication: NECK PAIN
     Dosage: 25 UG/HR, 3 PATCHES EVERY 48 HOURS
     Route: 062
  3. FENTANYL CITRATE [Suspect]
     Dosage: 25 UG/HR, 3 PATCHES EVERY 48 HOURS
     Route: 062
  4. DITROPAN [Concomitant]
     Indication: BLADDER DISORDER
     Route: 048
  5. UNKNOWN MEDICATION [Concomitant]
     Route: 065

REACTIONS (8)
  - HERPES ZOSTER [None]
  - HYSTERECTOMY [None]
  - MENOPAUSE [None]
  - NIGHT SWEATS [None]
  - PROCEDURAL COMPLICATION [None]
  - PRODUCT ADHESION ISSUE [None]
  - PYREXIA [None]
  - WRONG TECHNIQUE IN DRUG USAGE PROCESS [None]
